FAERS Safety Report 5476997-8 (Version None)
Quarter: 2007Q4

REPORT INFORMATION
  Report Type: 
  Country: None (occurrence: None)
  Receive Date: 20071004
  Receipt Date: 20070919
  Transmission Date: 20080405
  Serious: Yes (Other)
  Sender: FDA-Public Use
  Company Number: US-ROCHE-519408

PATIENT
  Age: 50 Year
  Sex: Male

DRUGS (1)
  1. INTERFERON ALFA-2A [Suspect]
     Route: 065

REACTIONS (1)
  - PARKINSONISM [None]
